FAERS Safety Report 24710185 (Version 1)
Quarter: 2024Q4

REPORT INFORMATION
  Report Type: Spontaneous
  Country: US (occurrence: US)
  Receive Date: 20241209
  Receipt Date: 20241209
  Transmission Date: 20250115
  Serious: No
  Sender: GLENMARK
  Company Number: US-GLENMARK PHARMACEUTICALS-2024GMK089878

PATIENT

DRUGS (3)
  1. OMEPRAZOLE [Suspect]
     Active Substance: OMEPRAZOLE
     Indication: Product used for unknown indication
     Dosage: UNK, ONCE A DAY
     Route: 065
     Dates: start: 2010
  2. UMECLIDINIUM BROMIDE\VILANTEROL TRIFENATATE [Suspect]
     Active Substance: UMECLIDINIUM BROMIDE\VILANTEROL TRIFENATATE
     Indication: Product used for unknown indication
     Dosage: UNK, ANORO INHALER
     Dates: start: 202401
  3. LEVOTHYROXINE [Concomitant]
     Active Substance: LEVOTHYROXINE
     Indication: Thyroid disorder
     Dosage: UNK
     Route: 065

REACTIONS (14)
  - Anhidrosis [Unknown]
  - Condition aggravated [Unknown]
  - Dyspnoea [Unknown]
  - Pallor [Unknown]
  - Feeling hot [Unknown]
  - Paraesthesia [Unknown]
  - Vitamin B2 decreased [Unknown]
  - Heart rate decreased [Unknown]
  - Vitamin B12 decreased [Unknown]
  - Muscular weakness [Unknown]
  - Fatigue [Unknown]
  - Dizziness [Unknown]
  - Product use issue [Unknown]
  - Contraindicated product administered [Unknown]
